FAERS Safety Report 10080053 (Version 1)
Quarter: 2014Q2

REPORT INFORMATION
  Report Type: Spontaneous
  Country: US (occurrence: US)
  Receive Date: 20140415
  Receipt Date: 20140415
  Transmission Date: 20141212
  Serious: Yes (Hospitalization, Other)
  Sender: FDA-Public Use
  Company Number: US-FRI-1000066458

PATIENT
  Age: 58 Year
  Sex: Female

DRUGS (2)
  1. FETZIMA [Suspect]
     Indication: MAJOR DEPRESSION
     Dosage: 20 MG
     Dates: start: 201403, end: 201403
  2. FETZIMA [Suspect]
     Indication: MAJOR DEPRESSION
     Dosage: 40 MG
     Dates: start: 201403, end: 20140330

REACTIONS (2)
  - Suicidal ideation [Recovered/Resolved]
  - Binge drinking [Recovered/Resolved]
